FAERS Safety Report 9271153 (Version 2)
Quarter: 2013Q2

REPORT INFORMATION
  Report Type: Report from Study
  Country: CA (occurrence: CA)
  Receive Date: 20130506
  Receipt Date: 20130602
  Transmission Date: 20140414
  Serious: Yes (Death)
  Sender: FDA-Public Use
  Company Number: PHHY2011CA115635

PATIENT
  Age: 82 Year
  Sex: Female

DRUGS (3)
  1. ACLASTA [Suspect]
     Indication: OSTEOPOROSIS
     Dosage: UNK
     Route: 042
     Dates: start: 20100326
  2. ACLASTA [Suspect]
     Dosage: UNK
     Route: 042
     Dates: start: 20110222
  3. ACLASTA [Suspect]
     Dosage: UNK
     Route: 042
     Dates: start: 20120430

REACTIONS (1)
  - Death [Fatal]
